FAERS Safety Report 12003219 (Version 1)
Quarter: 2016Q1

REPORT INFORMATION
  Report Type: Spontaneous
  Country: US (occurrence: US)
  Receive Date: 20160204
  Receipt Date: 20160204
  Transmission Date: 20160526
  Serious: No
  Sender: FDA-Public Use
  Company Number: US-UCBSA-2015021572

PATIENT
  Age: 45 Year
  Sex: Female

DRUGS (2)
  1. HYDROCODONE POLISTIREX AND CHLORPHENIRAMINE POLISTIREX PENNKINETIC [Suspect]
     Active Substance: CHLORPHENIRAMINE MALEATE\HYDROCODONE BITARTRATE
     Indication: COUGH
     Dosage: 1 TEASPOON, AS NEEDED (PRN)
  2. OXYGEN. [Concomitant]
     Active Substance: OXYGEN
     Indication: PRODUCT USED FOR UNKNOWN INDICATION
     Dosage: UNK DOSE

REACTIONS (7)
  - Diarrhoea [Recovered/Resolved]
  - Liquid product physical issue [None]
  - Nausea [Recovered/Resolved]
  - Muscle spasms [Recovered/Resolved]
  - Product colour issue [None]
  - Abdominal pain upper [Recovered/Resolved]
  - Product quality issue [Unknown]

NARRATIVE: CASE EVENT DATE: 201506
